FAERS Safety Report 13298145 (Version 1)
Quarter: 2017Q1

REPORT INFORMATION
  Report Type: Spontaneous
  Country: None (occurrence: US)
  Receive Date: 20170304
  Receipt Date: 20170304
  Transmission Date: 20170428
  Serious: Yes (Hospitalization)
  Sender: FDA-Public Use
  Company Number: None

PATIENT
  Age: 82 Year
  Sex: Male
  Weight: 75.8 kg

DRUGS (3)
  1. CARBOPLATIN. [Suspect]
     Active Substance: CARBOPLATIN
     Dates: end: 20170103
  2. TAXOL [Suspect]
     Active Substance: PACLITAXEL
     Dates: end: 20170131
  3. METFORMIN HYDROCHLORIDE. [Suspect]
     Active Substance: METFORMIN HYDROCHLORIDE
     Dates: end: 20170222

REACTIONS (11)
  - Chest pain [None]
  - Dyspnoea exertional [None]
  - Pulmonary oedema [None]
  - Sleep apnoea syndrome [None]
  - Dehydration [None]
  - Aspiration [None]
  - Atrial fibrillation [None]
  - Tachycardia [None]
  - Pneumonia [None]
  - Dizziness [None]
  - Hyponatraemia [None]

NARRATIVE: CASE EVENT DATE: 20170223
